FAERS Safety Report 18912889 (Version 1)
Quarter: 2021Q1

REPORT INFORMATION
  Report Type: Spontaneous
  Country: US (occurrence: US)
  Receive Date: 20210218
  Receipt Date: 20210218
  Transmission Date: 20210420
  Serious: No
  Sender: FDA-Public Use
  Company Number: US-GLAXOSMITHKLINE-USCH2021GSK003580

PATIENT
  Sex: Female
  Weight: 113 kg

DRUGS (4)
  1. TYLENOL [Concomitant]
     Active Substance: ACETAMINOPHEN
     Indication: SWELLING
  2. ADVIL [Suspect]
     Active Substance: IBUPROFEN
     Indication: LYMPHADENOPATHY
     Dosage: UNK
  3. TYLENOL [Concomitant]
     Active Substance: ACETAMINOPHEN
     Indication: LYMPHADENOPATHY
     Dosage: UNK
  4. ADVIL [Suspect]
     Active Substance: IBUPROFEN
     Indication: SWELLING

REACTIONS (1)
  - Product use in unapproved indication [Unknown]
